FAERS Safety Report 8575093-0 (Version None)
Quarter: 2012Q2

REPORT INFORMATION
  Report Type: 
  Country: None (occurrence: None)
  Receive Date: 20120423
  Receipt Date: 20100209
  Transmission Date: 20120825
  Serious: Yes (Other)
  Sender: FDA-Public Use
  Company Number: PHEH2009US14008

PATIENT
  Age: 72 Year
  Sex: Male
  Weight: 68.5 kg

DRUGS (6)
  1. PRILOSEC [Concomitant]
  2. DIFLUCAN [Concomitant]
  3. BACTRIM DS 9SULFAMETHOXAZOLE, TRIMETHOPRIM) [Concomitant]
  4. ACYCLOVIR [Concomitant]
  5. EXJADE [Suspect]
     Indication: LYMPHATIC DISORDER
     Dosage: 625 MG, DAILY, ORAL
     Route: 048
     Dates: start: 20090320, end: 20090513
  6. CELLCEPT (MYCIOPHENOLATE MOFETIL) [Concomitant]

REACTIONS (3)
  - BLOOD UREA INCREASED [None]
  - GLOMERULAR FILTRATION RATE DECREASED [None]
  - RENAL DISORDER [None]
